FAERS Safety Report 14975010 (Version 1)
Quarter: 2018Q2

REPORT INFORMATION
  Report Type: Spontaneous
  Country: US (occurrence: US)
  Receive Date: 20180515
  Receipt Date: 20180515
  Transmission Date: 20180711
  Serious: Yes (Other)
  Sender: FDA-Public Use
  Company Number: None

PATIENT
  Age: 67 Year
  Sex: Female
  Weight: 54 kg

DRUGS (18)
  1. VITAMIN D [Concomitant]
     Active Substance: CHOLECALCIFEROL
  2. MYLAN-LEVONTHROX [Concomitant]
  3. ADVAIR HFA [Concomitant]
     Active Substance: FLUTICASONE PROPIONATE\SALMETEROL XINAFOATE
  4. STIOLTO-REAPIMAT [Concomitant]
  5. NO DRUG NAME [Concomitant]
  6. IPAROPIUM SPRAY [Concomitant]
  7. TOPORAL [Concomitant]
  8. PROBIOTICS [Concomitant]
     Active Substance: PROBIOTICS NOS
  9. PROTONIX [Concomitant]
     Active Substance: PANTOPRAZOLE SODIUM
  10. LOSARTAN. [Concomitant]
     Active Substance: LOSARTAN
  11. CLARITIN [Concomitant]
     Active Substance: LORATADINE
  12. SINGULAIR [Concomitant]
     Active Substance: MONTELUKAST SODIUM
  13. CO-Q10 [Concomitant]
  14. MULTI VITAMIN [Concomitant]
     Active Substance: VITAMINS
  15. AZELASTINR SPRAY [Concomitant]
  16. ASPIRIN. [Concomitant]
     Active Substance: ASPIRIN
  17. VITAMIN C [Concomitant]
     Active Substance: ASCORBIC ACID
  18. REPATHA [Suspect]
     Active Substance: EVOLOCUMAB
     Indication: BLOOD CHOLESTEROL DECREASED
     Dosage: ?          QUANTITY:1 INJECTION(S);OTHER FREQUENCY:MONTHLY;?
     Route: 030
     Dates: start: 20171025, end: 20180430

REACTIONS (6)
  - Upper respiratory tract infection [None]
  - Fatigue [None]
  - Pyrexia [None]
  - Chills [None]
  - Asthenia [None]
  - Dyspnoea [None]

NARRATIVE: CASE EVENT DATE: 20180430
